FAERS Safety Report 4377158-6 (Version None)
Quarter: 2004Q2

REPORT INFORMATION
  Report Type: 
  Country: None (occurrence: None)
  Receive Date: 20040608
  Receipt Date: 20040527
  Transmission Date: 20050107
  Serious: Yes (Hospitalization)
  Sender: FDA-Public Use
  Company Number: HQWYE122827MAY04

PATIENT
  Age: 38 Year
  Sex: Male

DRUGS (1)
  1. ADVIL [Suspect]
     Indication: HEADACHE
     Dosage: 400 MG ONE TABLET
     Route: 048
     Dates: start: 20040522, end: 20040522

REACTIONS (1)
  - PANCREATITIS NECROTISING [None]
